FAERS Safety Report 8442772-5 (Version None)
Quarter: 2012Q2

REPORT INFORMATION
  Report Type: 
  Country: None (occurrence: None)
  Receive Date: 20120615
  Receipt Date: 20120604
  Transmission Date: 20120825
  Serious: Yes (Other)
  Sender: FDA-Public Use
  Company Number: US-AMGEN-QUU423879

PATIENT
  Age: 87 Year
  Sex: Female
  Weight: 45.805 kg

DRUGS (14)
  1. ALIGN [Concomitant]
  2. TRIMETHOPRIM + SULFAMETHOXAZOLE [Concomitant]
     Dosage: 800 MG, 3 TIMES/WK
  3. CORTICOSTEROID NOS [Concomitant]
  4. FLUCONAZOLE [Concomitant]
     Dosage: 100 MG, 3 TIMES/WK
  5. NPLATE [Suspect]
     Indication: IDIOPATHIC THROMBOCYTOPENIC PURPURA
     Dosage: 1000 MUG, QWK
     Dates: start: 20090101
  6. CYCLOSPORINE [Concomitant]
     Dosage: UNK UNK, UNK
  7. LAXATIVES [Concomitant]
  8. ASACOL [Concomitant]
     Dosage: 12 UNK, UNK
  9. FIBERCON                           /00567701/ [Concomitant]
  10. NEXIUM [Concomitant]
  11. LORAZEPAM [Concomitant]
     Dosage: UNK UNK, UNK
  12. PROPRANOLOL [Concomitant]
     Dosage: 3 UNK, UNK
  13. NPLATE [Suspect]
     Indication: MYELODYSPLASTIC SYNDROME
  14. PREDNISONE [Concomitant]
     Dosage: UNK

REACTIONS (17)
  - PLATELET COUNT DECREASED [None]
  - MALAISE [None]
  - THERAPEUTIC RESPONSE DECREASED [None]
  - WEIGHT DECREASED [None]
  - PAIN [None]
  - ASTHENIA [None]
  - HEARING IMPAIRED [None]
  - BACK PAIN [None]
  - IMPAIRED HEALING [None]
  - RED BLOOD CELL COUNT ABNORMAL [None]
  - INSOMNIA [None]
  - WOUND INFECTION [None]
  - PLATELET COUNT INCREASED [None]
  - HAEMOGLOBIN DECREASED [None]
  - FATIGUE [None]
  - NASOPHARYNGITIS [None]
  - HAEMATOCRIT DECREASED [None]
